FAERS Safety Report 6928107-5 (Version None)
Quarter: 2010Q3

REPORT INFORMATION
  Report Type: 
  Country: None (occurrence: None)
  Receive Date: 20100817
  Receipt Date: 20100805
  Transmission Date: 20110219
  Serious: Yes (Other)
  Sender: FDA-Public Use
  Company Number: US-SANOFI-AVENTIS-2010SA040737

PATIENT
  Age: 63 Year
  Sex: Male
  Weight: 99.5 kg

DRUGS (10)
  1. MULTAQ [Suspect]
     Indication: ATRIAL FIBRILLATION
     Route: 048
     Dates: start: 20100520, end: 20100617
  2. SIMVASTATIN [Concomitant]
     Dates: start: 20071127, end: 20100617
  3. ZAROXOLYN [Concomitant]
     Dates: start: 20071201, end: 20100617
  4. TORSEMIDE [Concomitant]
     Dates: end: 20100617
  5. POTASSIUM CHLORIDE [Concomitant]
  6. ASPIRIN [Concomitant]
  7. COZAAR [Concomitant]
  8. NIACIN [Concomitant]
  9. METOPROLOL TARTRATE [Concomitant]
  10. PANTOPRAZOLE [Concomitant]

REACTIONS (12)
  - ATRIAL FIBRILLATION [None]
  - BLOOD CREATININE INCREASED [None]
  - BLOOD UREA INCREASED [None]
  - DIZZINESS [None]
  - DYSPNOEA [None]
  - FATIGUE [None]
  - FEELING ABNORMAL [None]
  - FLUID OVERLOAD [None]
  - HYPOTENSION [None]
  - OFF LABEL USE [None]
  - PAIN IN EXTREMITY [None]
  - RENAL FAILURE [None]
